FAERS Safety Report 6712692-2 (Version None)
Quarter: 2010Q2

REPORT INFORMATION
  Report Type: 
  Country: None (occurrence: None)
  Receive Date: 20100506
  Receipt Date: 20100506
  Transmission Date: 20101027
  Serious: Yes (Hospitalization, Other)
  Sender: FDA-Public Use
  Company Number: None

PATIENT
  Age: 8 Year
  Sex: Male
  Weight: 36.2878 kg

DRUGS (1)
  1. CIPRO [Suspect]
     Indication: URINARY TRACT INFECTION
     Dosage: PO
     Route: 048
     Dates: start: 20100215, end: 20100216

REACTIONS (14)
  - ARTHRALGIA [None]
  - DIPLOPIA [None]
  - DIZZINESS [None]
  - EYELID FUNCTION DISORDER [None]
  - GAIT DISTURBANCE [None]
  - HALLUCINATION [None]
  - MUSCULOSKELETAL PAIN [None]
  - MYOCLONUS [None]
  - PRURITUS [None]
  - RASH [None]
  - RESTLESSNESS [None]
  - STRABISMUS [None]
  - VISION BLURRED [None]
  - WEIGHT BEARING DIFFICULTY [None]
